FAERS Safety Report 16214717 (Version 3)
Quarter: 2019Q2

REPORT INFORMATION
  Report Type: Report from Study
  Country: JP (occurrence: JP)
  Receive Date: 20190418
  Receipt Date: 20190604
  Transmission Date: 20190711
  Serious: Yes (Death)
  Sender: FDA-Public Use
  Company Number: JP-PFIZER INC-2019160287

PATIENT
  Age: 95 Year
  Sex: Male
  Weight: 41.9 kg

DRUGS (7)
  1. SELARA [Suspect]
     Active Substance: EPLERENONE
     Indication: CARDIAC FAILURE CHRONIC
     Dosage: 50 MG, DAILY
     Dates: start: 20180416, end: 20180920
  2. PLETAAL [Concomitant]
     Active Substance: CILOSTAZOL
     Indication: CEREBRAL INFARCTION
     Dosage: UNK
     Route: 048
     Dates: end: 20190106
  3. SELARA [Suspect]
     Active Substance: EPLERENONE
     Dosage: 100 MG, DAILY
     Route: 048
     Dates: start: 20180921, end: 20190106
  4. LASIX [Concomitant]
     Active Substance: FUROSEMIDE
     Indication: CARDIAC FAILURE
     Dosage: UNK
     Route: 048
     Dates: end: 20190106
  5. ZYLORIC [Concomitant]
     Active Substance: ALLOPURINOL
     Indication: HYPERURICAEMIA
     Dosage: UNK
     Route: 048
     Dates: end: 20190106
  6. ARTIST [Concomitant]
     Active Substance: CARVEDILOL
     Indication: CARDIAC FAILURE
     Dosage: UNK
     Route: 048
     Dates: end: 20190106
  7. DIART [Concomitant]
     Active Substance: AZOSEMIDE
     Dosage: UNK

REACTIONS (1)
  - Hypothermia [Fatal]

NARRATIVE: CASE EVENT DATE: 20190107
